FAERS Safety Report 16494933 (Version 1)
Quarter: 2019Q2

REPORT INFORMATION
  Report Type: Spontaneous
  Country: CA (occurrence: CA)
  Receive Date: 20190628
  Receipt Date: 20190628
  Transmission Date: 20190711
  Serious: Yes (Life-Threatening, Hospitalization, Other)
  Sender: FDA-Public Use
  Company Number: CA-PFIZER INC-2019275363

PATIENT
  Age: 76 Year
  Sex: Female

DRUGS (12)
  1. ESOMEPRAZOLE MAGNESIUM TRIHYDRATE [Concomitant]
     Active Substance: ESOMEPRAZOLE MAGNESIUM
     Dosage: UNK
     Route: 065
  2. HYDROCHLOROTHIAZIDE. [Concomitant]
     Active Substance: HYDROCHLOROTHIAZIDE
     Dosage: UNK
     Route: 065
  3. TECHNETIUM TC 99M [Suspect]
     Active Substance: TECHNETIUM TC-99M
     Indication: CHEST PAIN
     Dosage: UNK
     Route: 042
  4. SYNTHROID [Concomitant]
     Active Substance: LEVOTHYROXINE SODIUM
     Dosage: UNK
     Route: 065
  5. TYLENOL WITH CODEINE [Concomitant]
     Active Substance: ACETAMINOPHEN\CODEINE PHOSPHATE
     Dosage: UNK
     Route: 065
  6. TECHNETIUM TC 99M [Suspect]
     Active Substance: TECHNETIUM TC-99M
     Dosage: UNK
     Route: 042
  7. PERSANTINE [Suspect]
     Active Substance: DIPYRIDAMOLE
     Dosage: 46.5 MG, UNK
     Route: 042
  8. TETROFOSMIN/ZINC CHLORIDE [Suspect]
     Active Substance: TETROFOSMIN\ZINC CHLORIDE
     Indication: CHEST PAIN
     Dosage: UNK
     Route: 042
  9. TETROFOSMIN/ZINC CHLORIDE [Suspect]
     Active Substance: TETROFOSMIN\ZINC CHLORIDE
     Indication: SCAN MYOCARDIAL PERFUSION
     Dosage: 0.0128 MG, UNK
     Route: 042
  10. TETROFOSMIN/ZINC CHLORIDE [Suspect]
     Active Substance: TETROFOSMIN\ZINC CHLORIDE
     Dosage: UNK
     Route: 042
  11. TETROFOSMIN/ZINC CHLORIDE [Suspect]
     Active Substance: TETROFOSMIN\ZINC CHLORIDE
     Indication: SURGERY
     Dosage: 0.0034 MG, UNK
     Route: 042
  12. AMINOPHYLLINE. [Suspect]
     Active Substance: AMINOPHYLLINE
     Dosage: 100 MG, UNK
     Route: 042

REACTIONS (11)
  - Toe amputation [Not Recovered/Not Resolved]
  - Injection site discolouration [Unknown]
  - Vomiting [Unknown]
  - Blister [Unknown]
  - Joint range of motion decreased [Unknown]
  - Renal failure [Not Recovered/Not Resolved]
  - Skin discolouration [Not Recovered/Not Resolved]
  - Diarrhoea [Unknown]
  - Injection site necrosis [Not Recovered/Not Resolved]
  - Nausea [Unknown]
  - Dizziness [Unknown]
